FAERS Safety Report 24078037 (Version 1)
Quarter: 2024Q3

REPORT INFORMATION
  Report Type: Spontaneous
  Country: CN (occurrence: CN)
  Receive Date: 20240711
  Receipt Date: 20240711
  Transmission Date: 20241016
  Serious: Yes (Other)
  Sender: SANOFI AVENTIS
  Company Number: CN-ASTELLAS-2024US019104

PATIENT
  Age: 78 Year
  Sex: Male

DRUGS (1)
  1. HARNAL [Suspect]
     Active Substance: TAMSULOSIN HYDROCHLORIDE
     Indication: Benign prostatic hyperplasia
     Dosage: 1 DF, QD
     Route: 048
     Dates: start: 20240604, end: 20240619

REACTIONS (3)
  - Amaurosis [Recovered/Resolved]
  - Dizziness [Recovering/Resolving]
  - Glare [Recovering/Resolving]

NARRATIVE: CASE EVENT DATE: 20240619
